FAERS Safety Report 6068297-2 (Version None)
Quarter: 2009Q1

REPORT INFORMATION
  Report Type: 
  Country: None (occurrence: None)
  Receive Date: 20090206
  Receipt Date: 20090130
  Transmission Date: 20090719
  Serious: Yes (Hospitalization, Other)
  Sender: FDA-Public Use
  Company Number: PHEH2009US01338

PATIENT
  Sex: Female

DRUGS (8)
  1. MYFORTIC [Suspect]
  2. PREDNISONE [Concomitant]
  3. LASIX [Concomitant]
  4. PROGRAF [Concomitant]
  5. ALBUTEROL [Concomitant]
  6. CORITRAT SIN [Concomitant]
  7. CLANADINE [Concomitant]
  8. VERAPAM [Concomitant]

REACTIONS (2)
  - BACTERIAL INFECTION [None]
  - CHOLECYSTECTOMY [None]
